FAERS Safety Report 18883467 (Version 2)
Quarter: 2021Q1

REPORT INFORMATION
  Report Type: Spontaneous
  Country: JP (occurrence: JP)
  Receive Date: 20210212
  Receipt Date: 20210317
  Transmission Date: 20210420
  Serious: No
  Sender: FDA-Public Use
  Company Number: JP-PFIZER INC-2021093543

PATIENT
  Age: 80 Year
  Sex: Female

DRUGS (1)
  1. GENOTROPIN GOQUICK 5.3MG [Suspect]
     Active Substance: SOMATROPIN
     Dosage: 0.2 MG
     Route: 058

REACTIONS (1)
  - Wrong technique in device usage process [Unknown]

NARRATIVE: CASE EVENT DATE: 20210131
